FAERS Safety Report 25271537 (Version 2)
Quarter: 2025Q2

REPORT INFORMATION
  Report Type: Spontaneous
  Country: US (occurrence: US)
  Receive Date: 20250506
  Receipt Date: 20250512
  Transmission Date: 20250717
  Serious: No
  Sender: SANDOZ
  Company Number: US-SANDOZ-SDZ2025US027939

PATIENT
  Sex: Female

DRUGS (1)
  1. RECLAST [Suspect]
     Active Substance: ZOLEDRONIC ACID
     Indication: Product used for unknown indication
     Route: 065
     Dates: start: 202504

REACTIONS (8)
  - Pyrexia [Not Recovered/Not Resolved]
  - Headache [Unknown]
  - Pain [Unknown]
  - Vomiting [Unknown]
  - Chills [Unknown]
  - Bone pain [Unknown]
  - Nausea [Unknown]
  - Product taste abnormal [Unknown]

NARRATIVE: CASE EVENT DATE: 20250401
